FAERS Safety Report 12425512 (Version 1)
Quarter: 2016Q2

REPORT INFORMATION
  Report Type: Spontaneous
  Country: CH (occurrence: CH)
  Receive Date: 20160601
  Receipt Date: 20160601
  Transmission Date: 20160815
  Serious: Yes (Hospitalization)
  Sender: FDA-Public Use
  Company Number: CH-009507513-1605CHE011945

PATIENT
  Age: 88 Year
  Sex: Male

DRUGS (14)
  1. COSAAR 100 [Suspect]
     Active Substance: LOSARTAN POTASSIUM
     Dosage: 25 MG, QD
     Route: 048
  2. SINTROM [Suspect]
     Active Substance: ACENOCOUMAROL
     Indication: ATRIAL FIBRILLATION
     Dosage: UNK
     Route: 048
     Dates: end: 201601
  3. DANCOR [Concomitant]
     Active Substance: NICORANDIL
     Route: 048
  4. WILD VI DE 3 [Concomitant]
     Dosage: 20 GTT, QD
     Route: 048
  5. OMEZOL [Concomitant]
     Active Substance: OMEPRAZOLE
     Dosage: 20 MG, QD
     Route: 048
     Dates: end: 2013
  6. DUROGESIC [Concomitant]
     Active Substance: FENTANYL
     Dosage: 25 MICROGRAM, QH
     Route: 062
  7. ALDACTONE [Concomitant]
     Active Substance: SPIRONOLACTONE
     Dosage: 25 MG, QD
     Route: 048
  8. TOREM [Concomitant]
     Active Substance: TORSEMIDE
  9. BELOC-ZOK [Suspect]
     Active Substance: METOPROLOL SUCCINATE
     Indication: CARDIAC FAILURE
     Dosage: 50 MG, QD
     Route: 048
     Dates: start: 20130228, end: 20130307
  10. IRFEN [Suspect]
     Active Substance: IBUPROFEN
     Dosage: 600 MG, BID
     Route: 048
     Dates: start: 201309, end: 201310
  11. METFIN [Concomitant]
     Active Substance: METFORMIN HYDROCHLORIDE
     Dosage: 1000 MG, BID
     Route: 048
  12. DIAMICRON [Concomitant]
     Active Substance: GLICLAZIDE
     Dosage: 30 MG, QD
     Route: 048
  13. DIGOXIN. [Concomitant]
     Active Substance: DIGOXIN
     Dosage: 0.25 MG, QD
     Route: 048
     Dates: end: 20130301
  14. NEXIUM [Concomitant]
     Active Substance: ESOMEPRAZOLE MAGNESIUM
     Dosage: 20 MG, QD
     Route: 048
     Dates: start: 2013

REACTIONS (5)
  - Hyperkalaemia [Recovered/Resolved]
  - Bradycardia [Unknown]
  - Post procedural haematoma [Recovered/Resolved]
  - Cardiac failure [Recovered/Resolved]
  - International normalised ratio increased [Recovered/Resolved]

NARRATIVE: CASE EVENT DATE: 20130225
